FAERS Safety Report 18793479 (Version 1)
Quarter: 2021Q1

REPORT INFORMATION
  Report Type: Spontaneous
  Country: US (occurrence: US)
  Receive Date: 20210127
  Receipt Date: 20210127
  Transmission Date: 20210419
  Serious: No
  Sender: FDA-Public Use
  Company Number: None

PATIENT
  Age: 72 Year
  Sex: Female
  Weight: 62.55 kg

DRUGS (8)
  1. VITAMIN B [Concomitant]
     Active Substance: VITAMIN B
  2. VITAMIN D [Concomitant]
     Active Substance: VITAMIN D NOS
  3. DEXCOM 6 [Concomitant]
  4. ESCITALOPRAM [Concomitant]
     Active Substance: ESCITALOPRAM OXALATE
  5. ESCITALOPRAM [Suspect]
     Active Substance: ESCITALOPRAM OXALATE
     Indication: ABDOMINAL DISCOMFORT
     Dosage: ?          QUANTITY:90 TABLET(S);?
     Route: 048
     Dates: start: 20210105, end: 20210110
  6. BASAGLAR [Concomitant]
     Active Substance: INSULIN GLARGINE
  7. VITAMIN C [Concomitant]
     Active Substance: ASCORBIC ACID
  8. NOVOLOG [Concomitant]
     Active Substance: INSULIN ASPART

REACTIONS (5)
  - Dizziness [None]
  - Tremor [None]
  - Nausea [None]
  - Pruritus [None]
  - Treatment failure [None]
